FAERS Safety Report 9433587 (Version 1)
Quarter: 2013Q3

REPORT INFORMATION
  Report Type: Report from Study
  Country: US (occurrence: US)
  Receive Date: 20130731
  Receipt Date: 20130731
  Transmission Date: 20140515
  Serious: Yes (Other)
  Sender: FDA-Public Use
  Company Number: US-MYLANLABS-2013S1016569

PATIENT
  Sex: 0

DRUGS (3)
  1. PACLITAXEL [Suspect]
     Indication: BREAST CANCER STAGE III
     Route: 064
  2. DOXORUBICIN [Suspect]
     Indication: BREAST CANCER STAGE III
     Route: 064
  3. CYCLOPHOSPHAMIDE [Suspect]
     Indication: BREAST CANCER STAGE III
     Route: 064

REACTIONS (2)
  - Foetal growth restriction [Unknown]
  - Foetal exposure during pregnancy [Recovered/Resolved]
